FAERS Safety Report 23234443 (Version 1)
Quarter: 2023Q4

REPORT INFORMATION
  Report Type: Spontaneous
  Country: US (occurrence: US)
  Receive Date: 20231128
  Receipt Date: 20231128
  Transmission Date: 20240109
  Serious: Yes (Death, Other)
  Sender: FDA-Public Use
  Company Number: US-HIKMA PHARMACEUTICALS USA INC.-US-H14001-23-67192

PATIENT
  Age: 34 Year
  Sex: Female

DRUGS (8)
  1. BUPIVACAINE [Suspect]
     Active Substance: BUPIVACAINE
     Indication: Epidural anaesthesia
     Dosage: UNKNOWN
     Route: 065
  2. BUPIVACAINE [Suspect]
     Active Substance: BUPIVACAINE
     Indication: Caesarean section
  3. DIGOXIN [Suspect]
     Active Substance: DIGOXIN
     Indication: Spinal anaesthesia
     Dosage: UNKNOWN
     Route: 037
  4. DIGOXIN [Suspect]
     Active Substance: DIGOXIN
     Indication: Caesarean section
  5. FENTANYL CITRATE [Suspect]
     Active Substance: FENTANYL CITRATE
     Indication: Spinal anaesthesia
     Dosage: 25 MILLIGRAM
     Route: 037
  6. FENTANYL CITRATE [Suspect]
     Active Substance: FENTANYL CITRATE
     Indication: Caesarean section
  7. MORPHINE SULFATE [Suspect]
     Active Substance: MORPHINE SULFATE
     Indication: Spinal anaesthesia
     Dosage: 0.1 MILLIGRAM
     Route: 042
  8. MORPHINE SULFATE [Suspect]
     Active Substance: MORPHINE SULFATE
     Indication: Caesarean section

REACTIONS (3)
  - Brain injury [Fatal]
  - Wrong product administered [Fatal]
  - Maternal exposure during delivery [Recovered/Resolved]
